FAERS Safety Report 14328765 (Version 1)
Quarter: 2017Q4

REPORT INFORMATION
  Report Type: Report from Study
  Country: ES (occurrence: ES)
  Receive Date: 20171227
  Receipt Date: 20171227
  Transmission Date: 20180321
  Serious: Yes (Hospitalization)
  Sender: FDA-Public Use
  Company Number: ES-PFIZER INC-2017547606

PATIENT
  Age: 68 Year
  Sex: Male

DRUGS (13)
  1. OXALIPLATIN. [Suspect]
     Active Substance: OXALIPLATIN
     Dosage: 1, 2X/WEEK
     Route: 042
     Dates: start: 20160331, end: 20160331
  2. LEUCOVORIN. [Suspect]
     Active Substance: LEUCOVORIN
     Indication: RECTAL CANCER
     Dosage: 692 MG, 2X/WEEK
     Route: 042
     Dates: start: 20160512, end: 20160512
  3. 5-FU /00098801/ [Suspect]
     Active Substance: FLUOROURACIL
     Dosage: 1, 2X/WEEK
     Route: 041
     Dates: start: 20160331, end: 20160331
  4. 5-FU /00098801/ [Suspect]
     Active Substance: FLUOROURACIL
     Dosage: 1, 2X/WEEK
     Route: 040
     Dates: start: 20160331, end: 20160331
  5. 5-FU /00098801/ [Suspect]
     Active Substance: FLUOROURACIL
     Dosage: 3321 MG, 2X/WEEK
     Route: 041
     Dates: start: 20160512, end: 20160512
  6. MONOPROST [Concomitant]
     Active Substance: LATANOPROST
     Dosage: DROPS
     Route: 065
  7. 5-FU /00098801/ [Suspect]
     Active Substance: FLUOROURACIL
     Indication: RECTAL CANCER
     Dosage: 553 MG, 2X/WEEK
     Route: 040
     Dates: start: 20160512, end: 20160512
  8. ORFIDAL [Concomitant]
     Active Substance: LORAZEPAM
     Dosage: UNK
     Route: 065
  9. OXALIPLATIN. [Suspect]
     Active Substance: OXALIPLATIN
     Indication: RECTAL CANCER
     Dosage: 260 MG, 2X/WEEK
     Route: 042
     Dates: start: 20160512, end: 20160512
  10. CAPECITABINE. [Suspect]
     Active Substance: CAPECITABINE
     Indication: RECTAL CANCER
     Dosage: UNK
     Route: 065
  11. AFLIBERCEPT [Suspect]
     Active Substance: AFLIBERCEPT
     Dosage: 1, 2X/WEEK
     Route: 042
     Dates: start: 20160331, end: 20160331
  12. LEUCOVORIN. [Suspect]
     Active Substance: LEUCOVORIN
     Dosage: 1, 2X/WEEK
     Route: 042
     Dates: start: 20160331, end: 20160331
  13. AFLIBERCEPT [Suspect]
     Active Substance: AFLIBERCEPT
     Indication: RECTAL CANCER
     Dosage: 260 MG, 2X/WEEK
     Route: 042
     Dates: start: 20160512, end: 20160512

REACTIONS (1)
  - Febrile neutropenia [Recovered/Resolved]

NARRATIVE: CASE EVENT DATE: 20160526
